FAERS Safety Report 7623356-5 (Version None)
Quarter: 2011Q3

REPORT INFORMATION
  Report Type: 
  Country: None (occurrence: None)
  Receive Date: 20110720
  Receipt Date: 20110711
  Transmission Date: 20111222
  Serious: Yes (Hospitalization)
  Sender: FDA-Public Use
  Company Number: CA-JNJFOC-20110705555

PATIENT
  Sex: Female
  Weight: 62 kg

DRUGS (4)
  1. METHOTREXATE [Concomitant]
     Route: 065
  2. ENBREL [Concomitant]
     Route: 065
  3. REMICADE [Suspect]
     Indication: RHEUMATOID ARTHRITIS
     Route: 042
     Dates: start: 20100401
  4. ASPIRIN [Concomitant]
     Route: 065

REACTIONS (1)
  - HIP ARTHROPLASTY [None]
